FAERS Safety Report 4391943-6 (Version None)
Quarter: 2004Q3

REPORT INFORMATION
  Report Type: 
  Country: None (occurrence: None)
  Receive Date: 20040701
  Receipt Date: 20040615
  Transmission Date: 20050211
  Serious: Yes (Hospitalization, Other)
  Sender: FDA-Public Use
  Company Number: USA030639490

PATIENT
  Age: 68 Year
  Sex: Female
  Weight: 70 kg

DRUGS (16)
  1. FORTEO [Suspect]
     Dates: start: 20030603
  2. HYDROXYCHLOROQUINE SULFATE [Concomitant]
  3. CORTICOSTEROID NOS [Concomitant]
  4. DARVOCET-N 100 [Concomitant]
  5. COUMADIN [Concomitant]
  6. FUROSEMIDE [Concomitant]
  7. POTASSIUM CHLORIDE [Concomitant]
  8. LOTENSIN [Concomitant]
  9. AMITRIPTYLINE HCL [Concomitant]
  10. KEPPRA [Concomitant]
  11. ELAVIL [Concomitant]
  12. AREDIA [Concomitant]
  13. ROCALTROL [Concomitant]
  14. IMURAN [Concomitant]
  15. KLONOPIN [Concomitant]
  16. PROCRIT (ERYTHROPOIETIN) [Concomitant]

REACTIONS (11)
  - BACK PAIN [None]
  - BILIARY DYSKINESIA [None]
  - CHOLECYSTITIS [None]
  - CHOLELITHIASIS [None]
  - FLUSHING [None]
  - JOINT CREPITATION [None]
  - PAIN EXACERBATED [None]
  - PHARMACEUTICAL PRODUCT COMPLAINT [None]
  - POST PROCEDURAL PAIN [None]
  - SENSORY DISTURBANCE [None]
  - TOE DEFORMITY [None]
